FAERS Safety Report 7072156-6 (Version None)
Quarter: 2010Q4

REPORT INFORMATION
  Report Type: 
  Country: None (occurrence: None)
  Receive Date: 20101029
  Receipt Date: 20091210
  Transmission Date: 20110411
  Serious: No
  Sender: FDA-Public Use
  Company Number: A0834574A

PATIENT
  Age: 45 Year
  Sex: Female

DRUGS (18)
  1. ADVAIR DISKUS 100/50 [Suspect]
     Indication: ASTHMA
     Dosage: 1PUFF TWICE PER DAY
     Route: 055
     Dates: start: 20070101, end: 20091001
  2. NOVOLOG [Concomitant]
  3. LEVEMIR [Concomitant]
  4. SINGULAIR [Concomitant]
  5. PROTONIX [Concomitant]
  6. XOPENEX [Concomitant]
  7. SYMBICORT [Concomitant]
  8. PLAVIX [Concomitant]
  9. LISINOPRIL [Concomitant]
  10. BENICAR [Concomitant]
  11. DILTIAZEM [Concomitant]
  12. LEXAPRO [Concomitant]
  13. WELLBUTRIN [Concomitant]
  14. LIPITOR [Concomitant]
  15. ASPIRIN [Concomitant]
  16. METFORMIN [Concomitant]
  17. VITAMIN D [Concomitant]
  18. NITROGLYCERIN [Concomitant]

REACTIONS (1)
  - HEADACHE [None]
